FAERS Safety Report 19388962 (Version 2)
Quarter: 2021Q3

REPORT INFORMATION
  Report Type: Spontaneous
  Country: US (occurrence: US)
  Receive Date: 20210608
  Receipt Date: 20210727
  Transmission Date: 20211014
  Serious: No
  Sender: FDA-Public Use
  Company Number: US-BIOGEN-2021BI01018772

PATIENT
  Age: 46 Year
  Sex: Female

DRUGS (2)
  1. VUMERITY [Suspect]
     Active Substance: DIROXIMEL FUMARATE
     Dosage: MAINTENANCE DOSE
     Route: 048
     Dates: start: 20210613, end: 202107
  2. VUMERITY [Suspect]
     Active Substance: DIROXIMEL FUMARATE
     Indication: MULTIPLE SCLEROSIS
     Route: 048
     Dates: start: 20210602

REACTIONS (7)
  - Inappropriate schedule of product administration [Unknown]
  - Flushing [Unknown]
  - Dyspepsia [Unknown]
  - Chest discomfort [Unknown]
  - Dyspnoea [Unknown]
  - Product dose omission in error [Unknown]
  - Feeling hot [Unknown]

NARRATIVE: CASE EVENT DATE: 202106
